FAERS Safety Report 19955768 (Version 2)
Quarter: 2021Q4

REPORT INFORMATION
  Report Type: Spontaneous
  Country: US (occurrence: US)
  Receive Date: 20211014
  Receipt Date: 20211020
  Transmission Date: 20220303
  Serious: No
  Sender: FDA-Public Use
  Company Number: US-PFIZER INC-202101219411

PATIENT
  Age: 17 Year
  Sex: Male

DRUGS (4)
  1. XELJANZ [Suspect]
     Active Substance: TOFACITINIB CITRATE
     Dosage: 10 MG
     Dates: start: 20210812
  2. LANSOPRAZOLE [Suspect]
     Active Substance: LANSOPRAZOLE
     Dosage: UNK
  3. PREDNISONE [Suspect]
     Active Substance: PREDNISONE
     Dosage: 40 MG, DAILY
  4. PREDNISONE [Suspect]
     Active Substance: PREDNISONE
     Dosage: 15 MG, DAILY (DECREASED BY 5MG EVERY FRIDAY)

REACTIONS (2)
  - Acne [Unknown]
  - Off label use [Unknown]

NARRATIVE: CASE EVENT DATE: 20210101
